FAERS Safety Report 18895936 (Version 1)
Quarter: 2021Q1

REPORT INFORMATION
  Report Type: Spontaneous
  Country: AU (occurrence: AU)
  Receive Date: 20210216
  Receipt Date: 20210216
  Transmission Date: 20210420
  Serious: Yes (Other)
  Sender: FDA-Public Use
  Company Number: AU-COEPTIS PHARMACEUTICALS, INC.-COE-2021-000012

PATIENT
  Age: 46 Year
  Sex: Female

DRUGS (3)
  1. CELECOXIB. [Suspect]
     Active Substance: CELECOXIB
     Indication: POLYARTHRITIS
  2. CELECOXIB. [Suspect]
     Active Substance: CELECOXIB
     Dates: start: 200412
  3. PREDNISOLONE. [Concomitant]
     Active Substance: PREDNISOLONE
     Indication: POLYARTHRITIS
     Dosage: 7.5 MG DAILY

REACTIONS (3)
  - Glomerulonephritis [Recovering/Resolving]
  - Chronic kidney disease [Recovering/Resolving]
  - Anti-neutrophil cytoplasmic antibody positive vasculitis [Recovering/Resolving]
